FAERS Safety Report 5989144-0 (Version None)
Quarter: 2008Q4

REPORT INFORMATION
  Report Type: 
  Country: None (occurrence: None)
  Receive Date: 20081209
  Receipt Date: 20081209
  Transmission Date: 20090506
  Serious: Yes (Hospitalization)
  Sender: FDA-Public Use
  Company Number: None

PATIENT
  Age: 81 Year
  Sex: Female
  Weight: 91.5 kg

DRUGS (14)
  1. RISPERIDONE [Suspect]
     Indication: BIPOLAR DISORDER
     Dosage: 0.5MG PO BID; CURRENT 0.5MG PO QAM AND 1.0MG PO QHS
     Route: 048
     Dates: start: 20080503, end: 20080617
  2. RISPERIDONE [Suspect]
     Indication: MAJOR DEPRESSION
     Dosage: 0.5MG PO BID; CURRENT 0.5MG PO QAM AND 1.0MG PO QHS
     Route: 048
     Dates: start: 20080503, end: 20080617
  3. RISPERIDONE [Suspect]
     Indication: BIPOLAR DISORDER
     Dosage: 0.5MG PO BID; CURRENT 0.5MG PO QAM AND 1.0MG PO QHS
     Route: 048
     Dates: start: 20080617
  4. RISPERIDONE [Suspect]
     Indication: MAJOR DEPRESSION
     Dosage: 0.5MG PO BID; CURRENT 0.5MG PO QAM AND 1.0MG PO QHS
     Route: 048
     Dates: start: 20080617
  5. RISPERIDONE [Concomitant]
  6. ZOLOFT [Concomitant]
  7. ARICEPT [Concomitant]
  8. PRINIVIL [Concomitant]
  9. METOPROLOL TARTRATE [Concomitant]
  10. GLIPIZIDE [Concomitant]
  11. ASPIRIN [Concomitant]
  12. CRESTOR [Concomitant]
  13. LORATADINE [Concomitant]
  14. INSULIN [Concomitant]

REACTIONS (2)
  - DEPRESSION [None]
  - HALLUCINATION [None]
